APPROVED DRUG PRODUCT: DORAL
Active Ingredient: QUAZEPAM
Strength: 7.5MG
Dosage Form/Route: TABLET;ORAL
Application: N018708 | Product #003
Applicant: GALT PHARMACEUTICALS LLC
Approved: Feb 26, 1987 | RLD: No | RS: No | Type: DISCN

PATENTS:
Patent 7608616 | Expires: Jun 3, 2028